FAERS Safety Report 6342397-1 (Version None)
Quarter: 2009Q3

REPORT INFORMATION
  Report Type: 
  Country: None (occurrence: None)
  Receive Date: 20090908
  Receipt Date: 20001214
  Transmission Date: 20100115
  Serious: No
  Sender: FDA-Public Use
  Company Number: NO-ROCHE-229377

PATIENT
  Sex: Male
  Weight: 4.6 kg

DRUGS (6)
  1. GS4104 [Suspect]
     Indication: INFLUENZA
     Dates: start: 20000117, end: 20000121
  2. VENTOLIN [Concomitant]
     Dates: start: 19991110
  3. FLUTIDE [Concomitant]
     Dates: start: 19991110, end: 20000223
  4. ZYRTEC [Concomitant]
     Dates: start: 19991110, end: 20000223
  5. PHENERGAN [Concomitant]
     Dates: start: 20000224
  6. BECOTIDE [Concomitant]
     Dates: start: 20000224

REACTIONS (2)
  - DRUG EXPOSURE DURING PREGNANCY [None]
  - PREGNANCY [None]
